FAERS Safety Report 25402322 (Version 1)
Quarter: 2025Q2

REPORT INFORMATION
  Report Type: Spontaneous
  Country: US (occurrence: US)
  Receive Date: 20250605
  Receipt Date: 20250605
  Transmission Date: 20250716
  Serious: Yes (Other)
  Sender: JOHNSON AND JOHNSON
  Company Number: US-JNJFOC-20250536510

PATIENT
  Sex: Male

DRUGS (3)
  1. INVEGA SUSTENNA [Suspect]
     Active Substance: PALIPERIDONE PALMITATE
     Indication: Product used for unknown indication
     Route: 065
  2. INVEGA SUSTENNA [Suspect]
     Active Substance: PALIPERIDONE PALMITATE
  3. INVEGA SUSTENNA [Suspect]
     Active Substance: PALIPERIDONE PALMITATE

REACTIONS (12)
  - Mental impairment [Unknown]
  - Nerve injury [Unknown]
  - Toxic neuropathy [Unknown]
  - Emotional disorder [Unknown]
  - Anhedonia [Unknown]
  - Sedation [Unknown]
  - Fatigue [Unknown]
  - Sexual dysfunction [Unknown]
  - Loss of libido [Unknown]
  - Brain fog [Unknown]
  - Depression [Unknown]
  - Dissociation [Unknown]
